FAERS Safety Report 5373839-6 (Version None)
Quarter: 2007Q2

REPORT INFORMATION
  Report Type: 
  Country: None (occurrence: None)
  Receive Date: 20070628
  Receipt Date: 20070620
  Transmission Date: 20071010
  Serious: Yes (Other)
  Sender: FDA-Public Use
  Company Number: IT-ASTRAZENECA-2007AC01170

PATIENT
  Age: 41 Year
  Sex: Male

DRUGS (1)
  1. OMEPRAZOLE [Suspect]

REACTIONS (1)
  - HEPATITIS ACUTE [None]
